FAERS Safety Report 9352219 (Version 1)
Quarter: 2013Q2

REPORT INFORMATION
  Report Type: Spontaneous
  Country: JP (occurrence: None)
  Receive Date: 20130612
  Receipt Date: 20130612
  Transmission Date: 20140414
  Serious: Yes (Hospitalization)
  Sender: FDA-Public Use
  Company Number: TCI2012A05344

PATIENT
  Age: 63 Year
  Sex: Male

DRUGS (6)
  1. LIOVEL COMBINATION TABLETS (ALOGLIPTIN BENZOATE, PIOGLITAZONE HYDROCHLORIDE) [Suspect]
     Indication: DIABETES MELLITUS
     Route: 048
     Dates: start: 20120306, end: 20120910
  2. TAKEPRON OD TABLETS 15 (LANSOPRAZOLE) [Concomitant]
  3. ADALAT CR [Concomitant]
  4. BAYASPIRIN [Concomitant]
  5. CARDENALIN [Concomitant]
  6. FLUITRAN [Concomitant]

REACTIONS (4)
  - Abdominal distension [None]
  - Abdominal pain [None]
  - Flatulence [None]
  - Subileus [None]
